FAERS Safety Report 22144308 (Version 2)
Quarter: 2023Q2

REPORT INFORMATION
  Report Type: Spontaneous
  Country: US (occurrence: US)
  Receive Date: 20230328
  Receipt Date: 20230420
  Transmission Date: 20230721
  Serious: No
  Sender: FDA-Public Use
  Company Number: US-UCBSA-2023010695

PATIENT

DRUGS (1)
  1. NEUPRO [Suspect]
     Active Substance: ROTIGOTINE
     Indication: Parkinson^s disease
     Dosage: 4 MILLIGRAM
     Dates: start: 20220224

REACTIONS (5)
  - Condition aggravated [Unknown]
  - Product adhesion issue [Unknown]
  - Product dose omission issue [Unknown]
  - Product availability issue [Unknown]
  - Insurance issue [Unknown]
